FAERS Safety Report 10459861 (Version 1)
Quarter: 2014Q3

REPORT INFORMATION
  Report Type: Spontaneous
  Country: US (occurrence: US)
  Receive Date: 20140917
  Receipt Date: 20140917
  Transmission Date: 20150326
  Serious: Yes (Other)
  Sender: FDA-Public Use
  Company Number: US-BAYER-2014-137657

PATIENT
  Age: 23 Year
  Sex: Female

DRUGS (1)
  1. MIRENA [Suspect]
     Active Substance: LEVONORGESTREL
     Indication: CONTRACEPTION
     Dosage: 20 MCG/24HR, UNK
     Route: 015
     Dates: start: 2011, end: 20140911

REACTIONS (8)
  - Device difficult to use [None]
  - Secretion discharge [None]
  - Device expulsion [None]
  - Procedural pain [None]
  - Device breakage [None]
  - Device physical property issue [None]
  - Genital haemorrhage [None]
  - Abdominal pain [None]

NARRATIVE: CASE EVENT DATE: 201408
